FAERS Safety Report 5940041-6 (Version None)
Quarter: 2008Q4

REPORT INFORMATION
  Report Type: 
  Country: None (occurrence: None)
  Receive Date: 20081104
  Receipt Date: 20081024
  Transmission Date: 20090506
  Serious: Yes (Other)
  Sender: FDA-Public Use
  Company Number: PHHY2008GB14284

PATIENT
  Sex: Female

DRUGS (2)
  1. RASILEZ [Suspect]
     Indication: HYPERTENSION
     Dosage: 300 MG, UNK
     Dates: start: 20080501
  2. AMLODIPINE [Concomitant]
     Indication: HYPERTENSION

REACTIONS (9)
  - BLOOD PRESSURE SYSTOLIC INCREASED [None]
  - ERYTHEMA [None]
  - HEART RATE INCREASED [None]
  - HYPERTENSION [None]
  - OEDEMA [None]
  - PERIORBITAL OEDEMA [None]
  - PSORIASIS [None]
  - RASH [None]
  - TACHYCARDIA [None]
